FAERS Safety Report 9768648 (Version 1)
Quarter: 2013Q4

REPORT INFORMATION
  Report Type: Report from Study
  Country: DE (occurrence: DE)
  Receive Date: 20131218
  Receipt Date: 20131218
  Transmission Date: 20140711
  Serious: Yes (Death)
  Sender: FDA-Public Use
  Company Number: DE-ROCHE-1320693

PATIENT
  Age: 46 Year
  Sex: Male
  Weight: 84 kg

DRUGS (5)
  1. BEVACIZUMAB [Suspect]
     Indication: RECTAL CANCER METASTATIC
     Route: 065
  2. FENTANYL [Concomitant]
     Indication: PAIN
     Dosage: 25-50UG/H
     Route: 065
     Dates: start: 20130403, end: 20131130
  3. IBUPROFEN [Concomitant]
     Indication: PAIN
     Route: 048
     Dates: start: 20130328, end: 20131130
  4. PANTOPRAZOL [Concomitant]
     Indication: PROPHYLAXIS AGAINST GASTROINTESTINAL ULCER
     Route: 048
     Dates: start: 20130328, end: 20131130
  5. METOCLOPRAMIDE [Concomitant]
     Indication: NAUSEA
     Route: 048
     Dates: start: 20130403, end: 20131130

REACTIONS (1)
  - Hepatic failure [Fatal]
